FAERS Safety Report 18469458 (Version 2)
Quarter: 2021Q1

REPORT INFORMATION
  Report Type: Spontaneous
  Country: US (occurrence: US)
  Receive Date: 20201105
  Receipt Date: 20210106
  Transmission Date: 20210419
  Serious: No
  Sender: FDA-Public Use
  Company Number: US-TAKEDA-2020TUS044125

PATIENT
  Sex: Male
  Weight: 102 kg

DRUGS (1)
  1. VONVENDI [Suspect]
     Active Substance: VON WILLEBRAND FACTOR (RECOMBINANT)
     Indication: VON WILLEBRAND^S DISEASE
     Dosage: 7500 INTERNATIONAL UNIT, QOD
     Route: 042

REACTIONS (1)
  - No adverse event [Unknown]
